FAERS Safety Report 8322184-5 (Version None)
Quarter: 2012Q2

REPORT INFORMATION
  Report Type: 
  Country: None (occurrence: None)
  Receive Date: 20120430
  Receipt Date: 20110426
  Transmission Date: 20120825
  Serious: No
  Sender: FDA-Public Use
  Company Number: US-COVIDIEN/TYCO HEALTHCARE/MALLINCKRODT-T201100839

PATIENT
  Sex: Female
  Weight: 51.247 kg

DRUGS (3)
  1. SIMVASTATIN [Concomitant]
     Indication: BLOOD CHOLESTEROL INCREASED
     Dosage: 10 MG, AT NIGHT
  2. RESTORIL                           /00393701/ [Concomitant]
     Indication: INSOMNIA
     Dosage: 15 MG, PRN
  3. HYDROCODONE BITARTRATE + ACETAMINOPHEN [Suspect]
     Indication: ARTHRITIS
     Dosage: 10/325 MG
     Route: 048
     Dates: start: 20110424, end: 20110424

REACTIONS (6)
  - IRRITABILITY [None]
  - DIZZINESS [None]
  - DRUG DISPENSING ERROR [None]
  - FEELING ABNORMAL [None]
  - ANXIETY [None]
  - INCORRECT DOSE ADMINISTERED [None]
